FAERS Safety Report 5963636-2 (Version None)
Quarter: 2008Q4

REPORT INFORMATION
  Report Type: 
  Country: None (occurrence: None)
  Receive Date: 20081124
  Receipt Date: 20081112
  Transmission Date: 20090506
  Serious: Yes (Hospitalization)
  Sender: FDA-Public Use
  Company Number: US-AVENTIS-200814661US

PATIENT
  Sex: Male
  Weight: 130.5 kg

DRUGS (11)
  1. KETEK [Suspect]
     Dates: start: 20041202, end: 20041201
  2. PLAVIX [Concomitant]
  3. ASPIRIN [Concomitant]
  4. LIPITOR [Concomitant]
  5. TOPROL-XL [Concomitant]
     Dosage: DOSE: 100 MG, 1.5 QD
  6. ISOSORBIDE MN [Concomitant]
  7. NITROGLYCERIN [Concomitant]
     Dosage: DOSE: UNK
  8. ARTHROTEC [Concomitant]
  9. PRILOSEC [Concomitant]
  10. RHINOCORT [Concomitant]
     Dosage: DOSE: UNK
  11. MUPIROCIN 2% OINTMENT [Concomitant]
     Dosage: DOSE: UNK

REACTIONS (14)
  - ABDOMINAL PAIN LOWER [None]
  - BIOPSY LIVER ABNORMAL [None]
  - CHEST PAIN [None]
  - CHILLS [None]
  - CHOLECYSTITIS [None]
  - CHRONIC HEPATITIS [None]
  - GALLBLADDER CHOLESTEROLOSIS [None]
  - GALLBLADDER DISORDER [None]
  - HEPATIC STEATOSIS [None]
  - LIVER FUNCTION TEST ABNORMAL [None]
  - NAUSEA [None]
  - PANCREAS LIPOMATOSIS [None]
  - PANCREATITIS [None]
  - PYREXIA [None]
